FAERS Safety Report 4979738-3 (Version None)
Quarter: 2006Q1

REPORT INFORMATION
  Report Type: 
  Country: None (occurrence: None)
  Receive Date: 20060216
  Receipt Date: 20051103
  Transmission Date: 20060701
  Serious: No
  Sender: FDA-Public Use
  Company Number: TPA2005A01406

PATIENT
  Age: 63 Year
  Sex: Male
  Weight: 99.7913 kg

DRUGS (7)
  1. ROZEREM [Suspect]
     Indication: SLEEP DISORDER
     Dosage: 8 MG, HS, PER ORAL
     Route: 048
     Dates: start: 20051101
  2. LAMICTAL [Concomitant]
  3. MICARDIS HCT (PRITOR PLUS) [Concomitant]
  4. KETOCONAZOL CREAM (KETOCONAZOLE) [Concomitant]
  5. CLONAZEPAM [Concomitant]
  6. SEROQUEL [Concomitant]
  7. AMBIEN [Concomitant]

REACTIONS (1)
  - NOCTURIA [None]
